FAERS Safety Report 21735177 (Version 2)
Quarter: 2023Q1

REPORT INFORMATION
  Report Type: Spontaneous
  Country: US (occurrence: US)
  Receive Date: 20221215
  Receipt Date: 20230105
  Transmission Date: 20230417
  Serious: Yes (Hospitalization)
  Sender: FDA-Public Use
  Company Number: US-TEVA-2022-US-2834664

PATIENT
  Age: 42 Year
  Sex: Male

DRUGS (8)
  1. MOXIFLOXACIN [Suspect]
     Active Substance: MOXIFLOXACIN
     Indication: Prophylaxis
     Dosage: UNDILUTED PRESERVATIVE FREE INTRACAMERAL MOXIFLOXACIN , 0.2 ML , MOXIFLOXACIN: 0.50 %
     Route: 050
  2. MOXIFLOXACIN [Suspect]
     Active Substance: MOXIFLOXACIN
     Indication: Endophthalmitis
     Dosage: UNDILUTED PRESERVATIVE FREE INTRASTROMAL MOXIFLOXACIN , 0.1 ML , MOXIFLOXACIN: 0.50 %
     Route: 050
  3. PREDNISOLONE ACETATE [Suspect]
     Active Substance: PREDNISOLONE ACETATE
     Indication: Corneal decompensation
     Route: 065
  4. PREDNISOLONE ACETATE [Suspect]
     Active Substance: PREDNISOLONE ACETATE
     Indication: Toxic anterior segment syndrome
  5. PREDNISOLONE ACETATE [Suspect]
     Active Substance: PREDNISOLONE ACETATE
     Indication: Corneal oedema
  6. SALINE [Suspect]
     Active Substance: SODIUM CHLORIDE
     Indication: Corneal decompensation
     Dosage: DROPS
     Route: 065
  7. SALINE [Suspect]
     Active Substance: SODIUM CHLORIDE
     Indication: Toxic anterior segment syndrome
  8. SALINE [Suspect]
     Active Substance: SODIUM CHLORIDE
     Indication: Corneal oedema

REACTIONS (5)
  - Corneal decompensation [Recovering/Resolving]
  - Toxic anterior segment syndrome [Recovering/Resolving]
  - Drug ineffective [Unknown]
  - Off label use [Unknown]
  - Off label use [Unknown]
